FAERS Safety Report 19175488 (Version 1)
Quarter: 2021Q2

REPORT INFORMATION
  Report Type: Report from Study
  Country: CR (occurrence: CR)
  Receive Date: 20210423
  Receipt Date: 20210423
  Transmission Date: 20210717
  Serious: Yes (Hospitalization)
  Sender: FDA-Public Use
  Company Number: NVSC2021CR088526

PATIENT
  Age: 61 Year
  Sex: Male

DRUGS (2)
  1. CO?DIOVAN [Suspect]
     Active Substance: HYDROCHLOROTHIAZIDE\VALSARTAN
     Indication: PRODUCT USED FOR UNKNOWN INDICATION
     Dosage: 320/12.5 MG
     Route: 065
  2. GALVUS MET [Suspect]
     Active Substance: METFORMIN HYDROCHLORIDE\VILDAGLIPTIN
     Indication: PRODUCT USED FOR UNKNOWN INDICATION
     Dosage: 50/1000 MG
     Route: 065
     Dates: start: 2005

REACTIONS (5)
  - Urinary tract obstruction [Unknown]
  - Sepsis [Unknown]
  - Nephrolithiasis [Unknown]
  - COVID-19 [Unknown]
  - Urinary tract infection [Unknown]
